FAERS Safety Report 23993914 (Version 1)
Quarter: 2024Q2

REPORT INFORMATION
  Report Type: Spontaneous
  Country: GB (occurrence: GB)
  Receive Date: 20240620
  Receipt Date: 20240620
  Transmission Date: 20240716
  Serious: Yes (Other)
  Sender: FDA-Public Use
  Company Number: GB-CELLTRION INC.-2023GB008596

PATIENT

DRUGS (2)
  1. INFLIXIMAB [Suspect]
     Active Substance: INFLIXIMAB
     Indication: Crohn^s disease
     Dosage: 120MG PRE FILLED PEN PK2
     Route: 058
     Dates: start: 202210
  2. INFLIXIMAB [Suspect]
     Active Substance: INFLIXIMAB
     Dosage: 120MG PRE FILLED PEN PK2
     Route: 058
     Dates: start: 20240614

REACTIONS (5)
  - Colitis [Unknown]
  - Shoulder operation [Unknown]
  - Alopecia [Unknown]
  - Injection site erythema [Unknown]
  - Intentional dose omission [Unknown]
